FAERS Safety Report 9606479 (Version 2)
Quarter: 2013Q4

REPORT INFORMATION
  Report Type: Spontaneous
  Country: US (occurrence: US)
  Receive Date: 20131008
  Receipt Date: 20131008
  Transmission Date: 20140711
  Serious: No
  Sender: FDA-Public Use
  Company Number: US-AMGEN-USASP2013054506

PATIENT
  Age: 88 Year
  Sex: Female
  Weight: 70.3 kg

DRUGS (10)
  1. PROLIA [Suspect]
     Indication: PRODUCT USED FOR UNKNOWN INDICATION
     Dosage: 60 MG, UNK
     Route: 058
     Dates: start: 20130523
  2. CALCIUM 600 + D [Concomitant]
  3. D3 [Concomitant]
     Dosage: 2000 UNIT, UNK
  4. ACETYLSALICYLIC ACID [Concomitant]
     Dosage: 81 MG, UNK
     Route: 048
  5. GABAPENTIN [Concomitant]
     Dosage: 100 MUG, TID
  6. DETROL LA [Concomitant]
     Dosage: 20 MG, UNK
  7. LEXAPRO [Concomitant]
     Dosage: 20 MG, UNK
  8. METOPROLOL SUCC CT [Concomitant]
     Dosage: 25 MG, UNK
  9. LOSARTAN [Concomitant]
     Dosage: 100 MG, UNK
  10. PREVACID [Concomitant]
     Dosage: 30 MG, UNK

REACTIONS (2)
  - Rash generalised [Recovered/Resolved]
  - Hypersensitivity [Recovered/Resolved]
